FAERS Safety Report 6246658-6 (Version None)
Quarter: 2009Q2

REPORT INFORMATION
  Report Type: 
  Country: None (occurrence: None)
  Receive Date: 20090626
  Receipt Date: 20090527
  Transmission Date: 20091009
  Serious: Yes (Hospitalization)
  Sender: FDA-Public Use
  Company Number: BE-PFIZER INC-2009228812

PATIENT
  Age: 30 Year

DRUGS (1)
  1. DEPO-MEDROL [Suspect]
     Dosage: 80 MG, UNK

REACTIONS (2)
  - CHILLS [None]
  - FLUSHING [None]
